FAERS Safety Report 8569989-3 (Version None)
Quarter: 2012Q3

REPORT INFORMATION
  Report Type: 
  Country: None (occurrence: None)
  Receive Date: 20120803
  Receipt Date: 20120723
  Transmission Date: 20120928
  Serious: Yes (Disabling)
  Sender: FDA-Public Use
  Company Number: US-MERCK-1207USA011239

PATIENT

DRUGS (2)
  1. ZOCOR [Suspect]
     Dosage: 20 MG, QD
     Route: 048
  2. ZOCOR [Suspect]
     Dosage: 10 MG, QD
     Route: 048

REACTIONS (4)
  - MUSCULAR WEAKNESS [None]
  - LIGAMENT RUPTURE [None]
  - DYSSTASIA [None]
  - ASTHENIA [None]
